FAERS Safety Report 5617245-5 (Version None)
Quarter: 2008Q1

REPORT INFORMATION
  Report Type: 
  Country: None (occurrence: None)
  Receive Date: 20080206
  Receipt Date: 20080206
  Transmission Date: 20080703
  Serious: Yes (Hospitalization)
  Sender: FDA-Public Use
  Company Number: None

PATIENT
  Sex: Male
  Weight: 84 kg

DRUGS (3)
  1. FLUOROURACIL [Suspect]
     Dosage: 5600 MG
     Dates: end: 20080118
  2. LEUCOVORIN CALCIUM [Suspect]
     Dosage: 800 MG
     Dates: end: 20080116
  3. ELOXATIN [Suspect]
     Dosage: 170 MG
     Dates: end: 20080116

REACTIONS (3)
  - CHOLECYSTITIS ACUTE [None]
  - CHOLECYSTITIS INFECTIVE [None]
  - PANCREATITIS [None]
